FAERS Safety Report 11223268 (Version 1)
Quarter: 2015Q2

REPORT INFORMATION
  Report Type: Spontaneous
  Country: GR (occurrence: GR)
  Receive Date: 20150626
  Receipt Date: 20150626
  Transmission Date: 20150821
  Serious: Yes (Other)
  Sender: FDA-Public Use
  Company Number: GR-ASTRAZENECA-2015SE60791

PATIENT
  Age: 67 Year
  Sex: Male

DRUGS (1)
  1. VANDETANIB. [Suspect]
     Active Substance: VANDETANIB
     Indication: MEDULLARY THYROID CANCER
     Route: 048

REACTIONS (5)
  - Sepsis [Unknown]
  - Ulna fracture [Unknown]
  - Epistaxis [Unknown]
  - Creatinine renal clearance decreased [Unknown]
  - Thrombocytopenia [Unknown]
